FAERS Safety Report 4285505-9 (Version None)
Quarter: 2004Q1

REPORT INFORMATION
  Report Type: 
  Country: None (occurrence: None)
  Receive Date: 20040202
  Receipt Date: 20040123
  Transmission Date: 20041129
  Serious: Yes (Hospitalization)
  Sender: FDA-Public Use
  Company Number: US-SHR-04-020134

PATIENT
  Age: 41 Year
  Sex: Male

DRUGS (8)
  1. BETASERON [Suspect]
     Indication: MULTIPLE SCLEROSIS
     Dosage: 8 MIU, EVERY 2D, SUBCUTANEOUS
     Route: 058
     Dates: start: 20020701
  2. SYNTHROID [Concomitant]
  3. BACLOFEN [Concomitant]
  4. PRAVACHOL [Concomitant]
  5. ZANAFLEX [Concomitant]
  6. PROCARDIA [Concomitant]
  7. TOPROL-XL [Concomitant]
  8. ANTIHYPERTENSIVES [Concomitant]

REACTIONS (2)
  - HAEMODIALYSIS [None]
  - RENAL FAILURE [None]
